FAERS Safety Report 17927222 (Version 1)
Quarter: 2020Q2

REPORT INFORMATION
  Report Type: Spontaneous
  Country: US (occurrence: US)
  Receive Date: 20200621
  Receipt Date: 20200621
  Transmission Date: 20200714
  Serious: No
  Sender: FDA-Public Use
  Company Number: None

PATIENT
  Age: 64 Year
  Sex: Male

DRUGS (1)
  1. NIVOLUMAB (NIVOLUMAB 10MG/ML INJ, SOLN) [Suspect]
     Active Substance: NIVOLUMAB
     Indication: SMALL CELL LUNG CANCER
     Route: 042
     Dates: start: 20200331

REACTIONS (2)
  - Hypothyroidism [None]
  - Thyroiditis [None]

NARRATIVE: CASE EVENT DATE: 20200519
